FAERS Safety Report 14962711 (Version 1)
Quarter: 2018Q2

REPORT INFORMATION
  Report Type: Spontaneous
  Country: FI (occurrence: FI)
  Receive Date: 20180601
  Receipt Date: 20180601
  Transmission Date: 20180711
  Serious: Yes (Other)
  Sender: FDA-Public Use
  Company Number: FI-ALLERGAN-1828474US

PATIENT
  Age: 64 Year
  Sex: Female

DRUGS (4)
  1. RISPERIDONE. [Suspect]
     Active Substance: RISPERIDONE
     Indication: PRODUCT USED FOR UNKNOWN INDICATION
     Route: 065
  2. MINISUN [Suspect]
     Active Substance: CHOLECALCIFEROL
     Indication: PRODUCT USED FOR UNKNOWN INDICATION
     Route: 065
  3. MEMANTINE HCL - BP [Suspect]
     Active Substance: MEMANTINE
     Indication: PRODUCT USED FOR UNKNOWN INDICATION
     Route: 065
  4. LAXOBERON [Suspect]
     Active Substance: SODIUM PICOSULFATE
     Indication: CONSTIPATION
     Dosage: 10 GTT, QHS
     Route: 048

REACTIONS (10)
  - Gastrointestinal sounds abnormal [Unknown]
  - Malaise [Unknown]
  - Somnolence [Unknown]
  - Gastric disorder [Recovering/Resolving]
  - Drug interaction [Unknown]
  - Dementia [Unknown]
  - Fatigue [Unknown]
  - Anorectal disorder [Unknown]
  - Diarrhoea [Unknown]
  - Drug ineffective [Unknown]
